FAERS Safety Report 18479329 (Version 1)
Quarter: 2020Q4

REPORT INFORMATION
  Report Type: Spontaneous
  Country: US (occurrence: US)
  Receive Date: 20201106
  Receipt Date: 20201106
  Transmission Date: 20210114
  Serious: Yes (Hospitalization, Disabling)
  Sender: FDA-Public Use
  Company Number: None

PATIENT
  Age: 50 Year
  Sex: Female
  Weight: 67.5 kg

DRUGS (5)
  1. EXPAREL [Suspect]
     Active Substance: BUPIVACAINE
     Indication: PAIN
     Dates: start: 20200630, end: 20200630
  2. VIT D [Concomitant]
     Active Substance: VITAMIN D NOS
  3. LYRICA [Concomitant]
     Active Substance: PREGABALIN
  4. ALEVE [Concomitant]
     Active Substance: NAPROXEN SODIUM
  5. VITAMIN C [Concomitant]
     Active Substance: ASCORBIC ACID

REACTIONS (7)
  - Inflammation [None]
  - Injection site inflammation [None]
  - Paraesthesia [None]
  - Gait disturbance [None]
  - Neuropathy peripheral [None]
  - Impaired healing [None]
  - Hypoaesthesia [None]

NARRATIVE: CASE EVENT DATE: 20200630
